FAERS Safety Report 6684297-3 (Version None)
Quarter: 2010Q2

REPORT INFORMATION
  Report Type: 
  Country: None (occurrence: None)
  Receive Date: 20100416
  Receipt Date: 20100405
  Transmission Date: 20101027
  Serious: Yes (Other)
  Sender: FDA-Public Use
  Company Number: PHHY2010JP22510

PATIENT
  Age: 64 Year
  Sex: Female

DRUGS (5)
  1. VALSARTAN [Suspect]
     Indication: HYPERTENSION
     Dosage: 80 MG PER DAY
  2. NIFEDIPINE [Concomitant]
     Dosage: 40 MG PER DAY
  3. BUNAZOSIN [Concomitant]
     Dosage: 6 MG PER DAY
  4. BUNAZOSIN [Concomitant]
     Dosage: 3 MG/DAY
  5. ATENOLOL [Concomitant]
     Dosage: 50 MG PER DAY

REACTIONS (12)
  - ADRENAL ADENOMA [None]
  - ADRENALECTOMY [None]
  - ANGIOPLASTY [None]
  - BLOOD ALDOSTERONE INCREASED [None]
  - BLOOD PRESSURE INADEQUATELY CONTROLLED [None]
  - HYPERTENSION [None]
  - KIDNEY SMALL [None]
  - PRIMARY HYPERALDOSTERONISM [None]
  - RENAL ARTERY STENOSIS [None]
  - RENAL ARTERY STENT PLACEMENT [None]
  - RENAL IMPAIRMENT [None]
  - RENIN DECREASED [None]
